FAERS Safety Report 9961609 (Version 1)
Quarter: 2014Q1

REPORT INFORMATION
  Report Type: Spontaneous
  Country: FR (occurrence: FR)
  Receive Date: 20140305
  Receipt Date: 20140305
  Transmission Date: 20141002
  Serious: Yes (Other)
  Sender: FDA-Public Use
  Company Number: FR-SA-2014SA026591

PATIENT
  Age: 82 Year
  Sex: Male

DRUGS (10)
  1. TRIATEC [Suspect]
     Indication: CARDIAC FAILURE
     Route: 048
     Dates: start: 20140211
  2. LASILIX [Suspect]
     Indication: CARDIAC FAILURE
     Route: 048
     Dates: start: 20140211
  3. ENZALUTAMIDE [Suspect]
     Indication: PROSTATE CANCER METASTATIC
     Route: 048
     Dates: start: 20140109
  4. PREVISCAN [Concomitant]
  5. PRAVADUAL [Concomitant]
  6. BISOPROLOL [Concomitant]
  7. DIFFU K [Concomitant]
  8. ZOLADEX [Concomitant]
  9. CORTANCYL [Concomitant]
  10. LODOZ [Concomitant]

REACTIONS (1)
  - Neutropenia [Recovered/Resolved]
